FAERS Safety Report 5663449-5 (Version None)
Quarter: 2008Q1

REPORT INFORMATION
  Report Type: 
  Country: None (occurrence: None)
  Receive Date: 20080313
  Receipt Date: 20080311
  Transmission Date: 20080703
  Serious: No
  Sender: FDA-Public Use
  Company Number: US-BAXTER-2008BH002021

PATIENT
  Sex: Female
  Weight: 72 kg

DRUGS (5)
  1. HEPARIN SODIUM [Suspect]
     Indication: ANTIPHOSPHOLIPID SYNDROME
     Route: 058
     Dates: start: 20070930, end: 20080305
  2. SYNTHROID [Concomitant]
     Indication: HYPOTHYROIDISM
     Route: 065
  3. CANASA [Concomitant]
     Indication: COLITIS ULCERATIVE
     Route: 054
  4. VITAMIN TAB [Concomitant]
     Indication: PREGNANCY
     Route: 048
  5. ASPIRIN [Concomitant]
     Indication: ANTIPHOSPHOLIPID SYNDROME
     Route: 048

REACTIONS (3)
  - DRUG EXPOSURE DURING PREGNANCY [None]
  - DYSPNOEA [None]
  - INJECTION SITE IRRITATION [None]
